FAERS Safety Report 10210597 (Version 1)
Quarter: 2014Q2

REPORT INFORMATION
  Report Type: Spontaneous
  Country: US (occurrence: None)
  Receive Date: 20140528
  Receipt Date: 20140528
  Transmission Date: 20141212
  Serious: Yes (Death)
  Sender: FDA-Public Use
  Company Number: UNT-2014-000865

PATIENT
  Age: 84 Year
  Sex: Female
  Weight: 42.2 kg

DRUGS (3)
  1. TYVASO [Suspect]
     Indication: PULMONARY ARTERIAL HYPERTENSION
     Dosage: 18-54 MICROGRAMS, QID, INHALATION
     Route: 055
     Dates: start: 20140220
  2. REVATIO (SILDENAFIL CITRATE) UNKNOWN [Concomitant]
  3. LETAIRIS (AMBRISENTAN) UNKNOWN [Concomitant]

REACTIONS (1)
  - Death [None]
